FAERS Safety Report 22037439 (Version 1)
Quarter: 2023Q1

REPORT INFORMATION
  Report Type: Spontaneous
  Country: RO (occurrence: RO)
  Receive Date: 20230226
  Receipt Date: 20230226
  Transmission Date: 20230418
  Serious: Yes (Other)
  Sender: FDA-Public Use
  Company Number: RO-JNJFOC-20230240239

PATIENT
  Age: 70 Year

DRUGS (3)
  1. IMBRUVICA [Suspect]
     Active Substance: IBRUTINIB
     Indication: Chronic lymphocytic leukaemia
     Route: 048
     Dates: end: 201910
  2. RITUXIMAB [Concomitant]
     Active Substance: RITUXIMAB
     Indication: Product used for unknown indication
     Dosage: 800 MG FIRST APPLICATION (05.05.2021), THEN 1600 MG MONTHLY CYCLES 2-6 (JUNE-OCTOBER 2021)
     Dates: start: 20210505
  3. VENETOCLAX [Suspect]
     Active Substance: VENETOCLAX
     Indication: Chronic lymphocytic leukaemia
     Dosage: 20MG DAYS 1-7, 50MG DAYS 8-14, 100MG DAYS 15-21, 200MG DAYS 22-28, 400MG DAYS 29-35
     Route: 065
     Dates: start: 20210222

REACTIONS (8)
  - Atrial fibrillation [Unknown]
  - Atrial flutter [Unknown]
  - Night sweats [Unknown]
  - Dyslipidaemia [Unknown]
  - Decreased appetite [Unknown]
  - Lymphadenopathy [Unknown]
  - Abdominal pain upper [Unknown]
  - Hypertension [Unknown]
